FAERS Safety Report 7809091-9 (Version None)
Quarter: 2011Q4

REPORT INFORMATION
  Report Type: 
  Country: None (occurrence: None)
  Receive Date: 20111012
  Receipt Date: 20110929
  Transmission Date: 20120403
  Serious: Yes (Hospitalization)
  Sender: FDA-Public Use
  Company Number: CA-ELI_LILLY_AND_COMPANY-CA201109008631

PATIENT
  Age: 90 Year
  Sex: Female

DRUGS (8)
  1. WELLBUTRIN [Concomitant]
  2. METHOTREXATE [Concomitant]
     Dosage: UNK, WEEKLY (1/W)
  3. PERINDOPRIL ERBUMINE [Concomitant]
  4. FORTEO [Suspect]
     Indication: OSTEOPOROSIS
     Dosage: 20 UG, QD
     Route: 058
     Dates: start: 20110616, end: 20110918
  5. FORTEO [Suspect]
     Dosage: 20 UG, QD
     Route: 058
     Dates: start: 20110929
  6. ASAPHEN [Concomitant]
     Dosage: 80 MG, UNK
  7. CARBOCAL [Concomitant]
     Dosage: 400 MG, UNK
  8. BISOPROLOL SANDOZ [Concomitant]

REACTIONS (2)
  - DYSPNOEA [None]
  - CARDIAC FAILURE CONGESTIVE [None]
